FAERS Safety Report 12334676 (Version 2)
Quarter: 2016Q2

REPORT INFORMATION
  Report Type: Spontaneous
  Country: US (occurrence: CA)
  Receive Date: 20160504
  Receipt Date: 20160516
  Transmission Date: 20160815
  Serious: Yes (Hospitalization)
  Sender: FDA-Public Use
  Company Number: CA-BIOMARINAP-CA-2016-109670

PATIENT
  Age: 13 Year
  Sex: Female
  Weight: 24 kg

DRUGS (4)
  1. ADVIL JUNIOR STRENGTH [Concomitant]
     Indication: PREMEDICATION
     Dosage: 200 MG, SINGLE
     Route: 048
  2. CLARITIN [Concomitant]
     Active Substance: LORATADINE
     Indication: PREMEDICATION
     Dosage: 10 MG, SINGLE
     Route: 048
  3. VIMIZIM [Suspect]
     Active Substance: ELOSULFASE ALFA
     Indication: MUCOPOLYSACCHARIDOSIS IV
     Dosage: 2 MG/KG, QW
     Route: 042
     Dates: start: 20141112
  4. EMLA [Concomitant]
     Active Substance: LIDOCAINE\PRILOCAINE
     Indication: PREMEDICATION
     Dosage: UNK, SINGLE
     Route: 061

REACTIONS (4)
  - Cough [Unknown]
  - Swollen tongue [Recovered/Resolved]
  - Dyspnoea [Recovered/Resolved]
  - Nasal congestion [Recovered/Resolved]

NARRATIVE: CASE EVENT DATE: 20160422
